FAERS Safety Report 11693958 (Version 1)
Quarter: 2015Q4

REPORT INFORMATION
  Report Type: Spontaneous
  Country: CA (occurrence: CA)
  Receive Date: 20151103
  Receipt Date: 20151103
  Transmission Date: 20160304
  Serious: Yes (Death)
  Sender: FDA-Public Use
  Company Number: CA-009507513-1511CAN001249

PATIENT
  Sex: Male
  Weight: 75.5 kg

DRUGS (1)
  1. KEYTRUDA [Suspect]
     Active Substance: PEMBROLIZUMAB
     Indication: MALIGNANT MELANOMA
     Dosage: 159 MG, Q3W
     Route: 042
     Dates: start: 20150922, end: 20151013

REACTIONS (1)
  - Death [Fatal]
